FAERS Safety Report 6723162-X (Version None)
Quarter: 2010Q2

REPORT INFORMATION
  Report Type: 
  Country: None (occurrence: None)
  Receive Date: 20100513
  Receipt Date: 20100513
  Transmission Date: 20101027
  Serious: Yes (Hospitalization)
  Sender: FDA-Public Use
  Company Number: None

PATIENT
  Age: 31 Year
  Sex: Male
  Weight: 85.2762 kg

DRUGS (1)
  1. PREVACID [Suspect]
     Indication: GASTROOESOPHAGEAL REFLUX DISEASE
     Dosage: 1 CAPSULE ONCE A DAY PO
     Route: 048
     Dates: start: 20100421, end: 20100510

REACTIONS (4)
  - CONSTIPATION [None]
  - RASH [None]
  - TENDERNESS [None]
  - URINARY RETENTION [None]
